FAERS Safety Report 13457682 (Version 1)
Quarter: 2017Q2

REPORT INFORMATION
  Report Type: Spontaneous
  Country: PL (occurrence: PL)
  Receive Date: 20170419
  Receipt Date: 20170419
  Transmission Date: 20170830
  Serious: Yes (Life-Threatening)
  Sender: FDA-Public Use
  Company Number: PL-PFIZER INC-2017165341

PATIENT
  Sex: Male

DRUGS (1)
  1. FRAGMIN [Suspect]
     Active Substance: DALTEPARIN SODIUM
     Indication: TRANS-SEXUALISM
     Dosage: 5000 IU, UNK
     Route: 058
     Dates: start: 20170102, end: 20170104

REACTIONS (1)
  - Genital haemorrhage [Recovered/Resolved]
